FAERS Safety Report 5822142-6 (Version None)
Quarter: 2008Q3

REPORT INFORMATION
  Report Type: 
  Country: None (occurrence: None)
  Receive Date: 20080725
  Receipt Date: 20080717
  Transmission Date: 20090109
  Serious: Yes (Other)
  Sender: FDA-Public Use
  Company Number: PHEH2008US06545

PATIENT
  Age: 77 Year
  Sex: Male
  Weight: 65.76 kg

DRUGS (2)
  1. EXELON [Suspect]
     Indication: DEMENTIA ALZHEIMER'S TYPE
     Dosage: UNK
     Route: 062
     Dates: start: 20070929, end: 20071007
  2. EXELON [Suspect]
     Indication: PARKINSON'S DISEASE

REACTIONS (6)
  - ASTHENIA [None]
  - CONFUSIONAL STATE [None]
  - EATING DISORDER [None]
  - FATIGUE [None]
  - GAIT DISTURBANCE [None]
  - MOVEMENT DISORDER [None]
